APPROVED DRUG PRODUCT: ROFLUMILAST
Active Ingredient: ROFLUMILAST
Strength: 500MCG
Dosage Form/Route: TABLET;ORAL
Application: A208303 | Product #001 | TE Code: AB
Applicant: ZYDUS PHARMACEUTICALS USA INC
Approved: Feb 10, 2022 | RLD: No | RS: No | Type: RX